FAERS Safety Report 5018254-X (Version None)
Quarter: 2006Q2

REPORT INFORMATION
  Report Type: 
  Country: None (occurrence: None)
  Receive Date: 20060530
  Receipt Date: 20060524
  Transmission Date: 20061013
  Serious: Yes (Hospitalization, Other)
  Sender: FDA-Public Use
  Company Number: 2006-05-0902

PATIENT
  Age: 36 Year
  Sex: Male

DRUGS (1)
  1. CELESTONE [Suspect]
     Indication: JOINT EFFUSION
     Dosage: 2MG SUBCU; INJ
     Route: 042
     Dates: start: 20060111, end: 20060111

REACTIONS (3)
  - HEART RATE IRREGULAR [None]
  - HEMIPLEGIA [None]
  - HYPOKALAEMIA [None]
